FAERS Safety Report 9986568 (Version 1)
Quarter: 2014Q1

REPORT INFORMATION
  Report Type: Report from Study
  Country: US (occurrence: US)
  Receive Date: 20140307
  Receipt Date: 20140307
  Transmission Date: 20141002
  Serious: No
  Sender: FDA-Public Use
  Company Number: US-ABBVIE-13P-163-1083189-00

PATIENT
  Age: 22 Year
  Sex: Male

DRUGS (6)
  1. HUMIRA [Suspect]
     Indication: COLITIS ULCERATIVE
     Dosage: LOADING DOSE
     Dates: start: 20130428
  2. 6-MP [Concomitant]
     Indication: COLITIS ULCERATIVE
  3. STEROID [Concomitant]
     Indication: COLITIS ULCERATIVE
     Dosage: TAPER
  4. FOLIC ACID [Concomitant]
     Indication: COLITIS ULCERATIVE
  5. ADVAIR [Concomitant]
     Indication: ASTHMA
  6. EPIPEN [Concomitant]
     Indication: FOOD ALLERGY

REACTIONS (1)
  - Injection site pain [Recovered/Resolved]
